FAERS Safety Report 5388048-4 (Version None)
Quarter: 2007Q3

REPORT INFORMATION
  Report Type: 
  Country: None (occurrence: None)
  Receive Date: 20070716
  Receipt Date: 20070704
  Transmission Date: 20080115
  Serious: Yes (Hospitalization)
  Sender: FDA-Public Use
  Company Number: BR-ROCHE-505909

PATIENT
  Age: 56 Year
  Sex: Female
  Weight: 41 kg

DRUGS (3)
  1. RIVOTRIL [Suspect]
     Indication: RELAXATION THERAPY
     Route: 048
     Dates: start: 20010101, end: 20070601
  2. RIVOTRIL [Suspect]
     Dosage: DOSAGE REDUCED. START DATE: JUL 2007
     Route: 048
  3. PROPRANOLOL [Concomitant]
     Indication: HYPERTENSION
     Dosage: DRUG REPORTED AS PROPANOLOL
     Route: 048

REACTIONS (2)
  - CONVULSION [None]
  - DIARRHOEA [None]
